FAERS Safety Report 5941394-5 (Version None)
Quarter: 2008Q4

REPORT INFORMATION
  Report Type: 
  Country: None (occurrence: None)
  Receive Date: 20081103
  Receipt Date: 20081024
  Transmission Date: 20090506
  Serious: Yes (Other)
  Sender: FDA-Public Use
  Company Number: 2008SP016204

PATIENT
  Age: 73 Year
  Sex: Male

DRUGS (4)
  1. LORATADINE [Suspect]
     Indication: DERMATITIS CONTACT
     Dosage: 10 MG; PO
     Route: 048
     Dates: start: 20080715
  2. CLEMASTINE FUMARATE [Suspect]
     Indication: DERMATITIS CONTACT
     Dosage: 3 MG; TID; PO
     Route: 048
     Dates: start: 20080715, end: 20080716
  3. BELLERGOT [Concomitant]
  4. DOXAR (DOXAZOSINUM) [Concomitant]

REACTIONS (4)
  - BALANCE DISORDER [None]
  - DIPLOPIA [None]
  - SOMNOLENCE [None]
  - VERTIGO [None]
